FAERS Safety Report 4825046-0 (Version None)
Quarter: 2005Q4

REPORT INFORMATION
  Report Type: 
  Country: None (occurrence: None)
  Receive Date: 20051109
  Receipt Date: 20051109
  Transmission Date: 20060501
  Serious: Yes (Hospitalization)
  Sender: FDA-Public Use
  Company Number: None

PATIENT
  Age: 29 Year
  Sex: Female
  Weight: 113.3993 kg

DRUGS (2)
  1. MERIDIA [Suspect]
     Indication: WEIGHT CONTROL
     Dosage: 1 DAY
     Dates: start: 20050906, end: 20050906
  2. MERIDIA [Suspect]
     Indication: WEIGHT CONTROL
     Dosage: 1 DAY
     Dates: start: 20051003, end: 20051008

REACTIONS (2)
  - GRAND MAL CONVULSION [None]
  - IMPAIRED DRIVING ABILITY [None]
